FAERS Safety Report 20600648 (Version 2)
Quarter: 2022Q2

REPORT INFORMATION
  Report Type: Spontaneous
  Country: US (occurrence: US)
  Receive Date: 20220316
  Receipt Date: 20220430
  Transmission Date: 20220721
  Serious: No
  Sender: FDA-Public Use
  Company Number: US-AIMMUNE THERAPEUTICS, INC.-2022AIMT00178

PATIENT

DRUGS (2)
  1. PALFORZIA [Suspect]
     Active Substance: PEANUT
     Indication: Food allergy
     Dosage: 20 MG, 1X/DAY
     Route: 048
     Dates: start: 20220218
  2. PALFORZIA [Suspect]
     Active Substance: PEANUT
     Dosage: 20 MG, ONCE, LAST DOSE PRIOR TO THE EVENT
     Route: 048
     Dates: start: 20220222, end: 20220222

REACTIONS (3)
  - Rash [Recovered/Resolved]
  - Abdominal pain upper [Recovered/Resolved]
  - Urticaria [Recovered/Resolved]

NARRATIVE: CASE EVENT DATE: 20220222
